FAERS Safety Report 16489113 (Version 4)
Quarter: 2019Q3

REPORT INFORMATION
  Report Type: Spontaneous
  Country: FI (occurrence: FI)
  Receive Date: 20190628
  Receipt Date: 20190815
  Transmission Date: 20191004
  Serious: Yes (Disabling, Other)
  Sender: FDA-Public Use
  Company Number: FI-AMGEN-FINSP2019099848

PATIENT
  Age: 75 Year
  Sex: Female
  Weight: 63.5 kg

DRUGS (4)
  1. ARANESP [Suspect]
     Active Substance: DARBEPOETIN ALFA
     Dosage: 100 MICROGRAM, QWK
     Route: 058
     Dates: start: 20190604
  2. ARANESP [Suspect]
     Active Substance: DARBEPOETIN ALFA
     Indication: CONGENITAL CYSTIC KIDNEY DISEASE
     Dosage: 80 MICROGRAM, QWK
     Route: 058
     Dates: start: 20190417
  3. PROGRAF [Concomitant]
     Active Substance: TACROLIMUS\TACROLIMUS ANHYDROUS
     Dosage: UNK
     Dates: start: 20190206
  4. ARANESP [Suspect]
     Active Substance: DARBEPOETIN ALFA
     Indication: NEPHROGENIC ANAEMIA
     Dosage: 40 MICROGRAM, QMO
     Route: 058
     Dates: start: 20160218

REACTIONS (4)
  - Aplasia pure red cell [Not Recovered/Not Resolved]
  - Renal transplant [Unknown]
  - Aplastic anaemia [Not Recovered/Not Resolved]
  - Bone marrow failure [Unknown]

NARRATIVE: CASE EVENT DATE: 2019
